FAERS Safety Report 7903778-5 (Version None)
Quarter: 2011Q4

REPORT INFORMATION
  Report Type: 
  Country: None (occurrence: None)
  Receive Date: 20111109
  Receipt Date: 20111103
  Transmission Date: 20120403
  Serious: Yes (Hospitalization)
  Sender: FDA-Public Use
  Company Number: US-ROCHE-1009499

PATIENT
  Sex: Male
  Weight: 71.278 kg

DRUGS (7)
  1. XOLAIR [Suspect]
     Indication: PRODUCT USED FOR UNKNOWN INDICATION
     Dates: start: 20110401
  2. XOLAIR [Suspect]
  3. XOLAIR [Suspect]
     Dates: start: 20110829
  4. XOLAIR [Suspect]
     Dates: start: 20111024
  5. XOLAIR [Suspect]
     Dates: start: 20110501
  6. XOLAIR [Suspect]
     Dates: start: 20110801
  7. XOLAIR [Suspect]
     Dates: start: 20110926

REACTIONS (1)
  - CORONARY ARTERY BYPASS [None]
